FAERS Safety Report 16860263 (Version 1)
Quarter: 2019Q3

REPORT INFORMATION
  Report Type: Spontaneous
  Country: US (occurrence: US)
  Receive Date: 20190927
  Receipt Date: 20190927
  Transmission Date: 20191005
  Serious: No
  Sender: FDA-Public Use
  Company Number: US-PFIZER INC-2019060272

PATIENT
  Age: 58 Year
  Sex: Female

DRUGS (1)
  1. SUCCINYLCHOLINE CHLORIDE. [Suspect]
     Active Substance: SUCCINYLCHOLINE CHLORIDE
     Dosage: UNK

REACTIONS (2)
  - Metabolic disorder [Unknown]
  - Drug hypersensitivity [Unknown]
